FAERS Safety Report 4623865-7 (Version None)
Quarter: 2005Q1

REPORT INFORMATION
  Report Type: 
  Country: None (occurrence: None)
  Receive Date: 20050331
  Receipt Date: 20050314
  Transmission Date: 20050727
  Serious: Yes (Other)
  Sender: FDA-Public Use
  Company Number: GB-BOEHRINGER INGELHEIM PHARMACEUTICALS, INC.-2005-UK-00445UK

PATIENT
  Age: 83 Year
  Sex: Male

DRUGS (9)
  1. SPIRIVA [Suspect]
     Indication: CHRONIC OBSTRUCTIVE PULMONARY DISEASE
     Route: 055
     Dates: start: 20040802, end: 20040902
  2. CO-AMILOFRUSE [Concomitant]
     Indication: CARDIAC FAILURE CONGESTIVE
     Dosage: 5/40 (2 MANE)
     Route: 048
  3. TEMAZEPAM [Concomitant]
     Indication: INSOMNIA
  4. ASPIRIN [Concomitant]
  5. GETTEARS [Concomitant]
  6. SYMBICORT [Concomitant]
     Dosage: 400/12/ (1 PUFF TWICE DAILY)
     Route: 055
  7. ALBUTEROL [Concomitant]
     Dosage: 2 PUFFS 4 TIMES DAILY
     Route: 055
  8. SALMETEROL [Concomitant]
  9. BECONASE [Concomitant]

REACTIONS (2)
  - DRUG EFFECT DECREASED [None]
  - DYSPNOEA [None]
